FAERS Safety Report 6505443-8 (Version None)
Quarter: 2009Q4

REPORT INFORMATION
  Report Type: 
  Country: None (occurrence: None)
  Receive Date: 20091218
  Receipt Date: 20091215
  Transmission Date: 20100525
  Serious: Yes (Life-Threatening)
  Sender: FDA-Public Use
  Company Number: JP-BAYER-200914597BYL

PATIENT
  Age: 46 Year
  Sex: Female

DRUGS (1)
  1. MIRENA [Suspect]
     Indication: MENORRHAGIA
     Dosage: UNIT DOSE: 52 MG
     Route: 015
     Dates: start: 20090610, end: 20091111

REACTIONS (2)
  - LARYNGEAL OEDEMA [None]
  - URTICARIA [None]
